FAERS Safety Report 15484143 (Version 1)
Quarter: 2018Q4

REPORT INFORMATION
  Report Type: Spontaneous
  Country: DE (occurrence: DE)
  Receive Date: 20181010
  Receipt Date: 20181010
  Transmission Date: 20190205
  Serious: Yes (Life-Threatening, Hospitalization)
  Sender: FDA-Public Use
  Company Number: DE-MYLANLABS-2018M1074977

PATIENT
  Age: 51 Year
  Sex: Female

DRUGS (1)
  1. FENTANYL. [Suspect]
     Active Substance: FENTANYL
     Indication: PAIN
     Route: 065

REACTIONS (8)
  - Coma [Recovered/Resolved]
  - Rhabdomyolysis [Recovering/Resolving]
  - Hypoxia [Recovering/Resolving]
  - Leukoencephalopathy [Recovering/Resolving]
  - Liver injury [Recovering/Resolving]
  - Cerebral atrophy [Recovering/Resolving]
  - Toxicity to various agents [Recovering/Resolving]
  - Acute kidney injury [Recovering/Resolving]
